FAERS Safety Report 6444637-7 (Version None)
Quarter: 2009Q4

REPORT INFORMATION
  Report Type: 
  Country: None (occurrence: None)
  Receive Date: 20091116
  Receipt Date: 20091116
  Transmission Date: 20100525
  Serious: Yes (Death)
  Sender: FDA-Public Use
  Company Number: None

PATIENT
  Sex: Female
  Weight: 52.1 kg

DRUGS (5)
  1. CLOFARABINE  40 MG M2 GENZYME 40 MG M2 = 60 MG DAILY X 5 DAILY [Suspect]
     Indication: ACUTE MYELOID LEUKAEMIA
     Dosage: 40 MG M2 = 60 MG DAILY X5 IV
     Route: 042
     Dates: start: 20090909
  2. CLOFARABINE  40 MG M2 GENZYME 40 MG M2 = 60 MG DAILY X 5 DAILY [Suspect]
     Indication: ACUTE MYELOID LEUKAEMIA
     Dosage: 40 MG M2 = 60 MG DAILY X5 IV
     Route: 042
     Dates: start: 20090910
  3. CLOFARABINE  40 MG M2 GENZYME 40 MG M2 = 60 MG DAILY X 5 DAILY [Suspect]
     Indication: ACUTE MYELOID LEUKAEMIA
     Dosage: 40 MG M2 = 60 MG DAILY X5 IV
     Route: 042
     Dates: start: 20090911
  4. CLOFARABINE  40 MG M2 GENZYME 40 MG M2 = 60 MG DAILY X 5 DAILY [Suspect]
     Indication: ACUTE MYELOID LEUKAEMIA
     Dosage: 40 MG M2 = 60 MG DAILY X5 IV
     Route: 042
     Dates: start: 20090912
  5. CLOFARABINE  40 MG M2 GENZYME 40 MG M2 = 60 MG DAILY X 5 DAILY [Suspect]
     Indication: ACUTE MYELOID LEUKAEMIA
     Dosage: 40 MG M2 = 60 MG DAILY X5 IV
     Route: 042
     Dates: start: 20090913

REACTIONS (6)
  - ABDOMINAL PAIN [None]
  - GASTRIC MUCOSAL HYPERTROPHY [None]
  - HYPOTENSION [None]
  - INTESTINAL MUCOSAL HYPERTROPHY [None]
  - NAUSEA [None]
  - VOMITING [None]
